FAERS Safety Report 6338999-9 (Version None)
Quarter: 2009Q3

REPORT INFORMATION
  Report Type: 
  Country: None (occurrence: None)
  Receive Date: 20090903
  Receipt Date: 20090826
  Transmission Date: 20100115
  Serious: Yes (Hospitalization)
  Sender: FDA-Public Use
  Company Number: PHHO2009US10525

PATIENT
  Age: 26 Year
  Sex: Female
  Weight: 58.957 kg

DRUGS (1)
  1. SANDOSTATIN LAR [Suspect]
     Indication: ACROMEGALY
     Dosage: 30MG MONTHLY
     Route: 030

REACTIONS (1)
  - ABDOMINAL PAIN UPPER [None]
